FAERS Safety Report 16233756 (Version 3)
Quarter: 2019Q3

REPORT INFORMATION
  Report Type: Spontaneous
  Country: US (occurrence: US)
  Receive Date: 20190424
  Receipt Date: 20190705
  Transmission Date: 20191004
  Serious: No
  Sender: FDA-Public Use
  Company Number: US-ASTRAZENECA-2019SE51619

PATIENT
  Age: 81 Year
  Sex: Male
  Weight: 77.1 kg

DRUGS (8)
  1. BEVESPI AEROSPHERE [Suspect]
     Active Substance: FORMOTEROL FUMARATE\GLYCOPYRROLATE
     Indication: DYSPNOEA
     Route: 055
     Dates: start: 20190404
  2. LATANOPROST. [Concomitant]
     Active Substance: LATANOPROST
     Indication: GLAUCOMA
     Route: 047
  3. ROPINIROLE. [Concomitant]
     Active Substance: ROPINIROLE
     Indication: RESTLESS LEGS SYNDROME
     Dates: start: 2014
  4. DORZOLAMIDE [Concomitant]
     Active Substance: DORZOLAMIDE
     Indication: GLAUCOMA
     Route: 047
  5. SIMVASTATIN. [Concomitant]
     Active Substance: SIMVASTATIN
     Indication: BLOOD CHOLESTEROL INCREASED
     Route: 048
     Dates: start: 2004
  6. ALFUZOSIN [Concomitant]
     Active Substance: ALFUZOSIN
     Dates: start: 2018
  7. TRAMADOL. [Concomitant]
     Active Substance: TRAMADOL
     Indication: BACK PAIN
  8. ASPIRIN. [Concomitant]
     Active Substance: ASPIRIN
     Dates: start: 2009, end: 2018

REACTIONS (12)
  - Dysuria [Unknown]
  - Vision blurred [Unknown]
  - Off label use [Unknown]
  - Glycosylated haemoglobin increased [Unknown]
  - Blood glucose increased [Unknown]
  - Nervousness [Unknown]
  - Device issue [Unknown]
  - Product use in unapproved indication [Unknown]
  - Productive cough [Unknown]
  - Dizziness [Unknown]
  - Intentional product misuse [Unknown]
  - Contusion [Recovered/Resolved]

NARRATIVE: CASE EVENT DATE: 2019
